FAERS Safety Report 6173341-8 (Version None)
Quarter: 2009Q2

REPORT INFORMATION
  Report Type: 
  Country: None (occurrence: None)
  Receive Date: 20090424
  Receipt Date: 20090108
  Transmission Date: 20091009
  Serious: No
  Sender: FDA-Public Use
  Company Number: ALL1-2009-00058

PATIENT
  Age: 13 Year
  Sex: Male

DRUGS (2)
  1. VYVANSE [Suspect]
     Dosage: 40 MG, 1X/DAY:QD, ORAL
     Route: 048
  2. LITHIUM CARBONATE [Suspect]
     Indication: AFFECTIVE DISORDER
     Dosage: 1X/DAY:QD, ORAL
     Route: 048

REACTIONS (2)
  - OFF LABEL USE [None]
  - URINARY RETENTION [None]
